FAERS Safety Report 19959240 (Version 1)
Quarter: 2021Q4

REPORT INFORMATION
  Report Type: Spontaneous
  Country: US (occurrence: US)
  Receive Date: 20211013
  Receipt Date: 20211013
  Transmission Date: 20220303
  Serious: No
  Sender: FDA-Public Use
  Company Number: None

PATIENT
  Sex: Male

DRUGS (1)
  1. ENTYVIO [Suspect]
     Active Substance: VEDOLIZUMAB
     Indication: Crohn^s disease
     Dosage: ?          OTHER FREQUENCY:EVERY 8 WEEKS;
     Route: 042
     Dates: start: 201709

REACTIONS (3)
  - Diarrhoea [None]
  - Haematochezia [None]
  - Crohn^s disease [None]
